FAERS Safety Report 17367945 (Version 1)
Quarter: 2020Q1

REPORT INFORMATION
  Report Type: Spontaneous
  Country: US (occurrence: US)
  Receive Date: 20200118
  Receipt Date: 20200118
  Transmission Date: 20200409
  Serious: Yes (Hospitalization)
  Sender: FDA-Public Use
  Company Number: None

PATIENT
  Age: 66 Year
  Sex: Male
  Weight: 66.2 kg

DRUGS (1)
  1. NEXAVAR [Suspect]
     Active Substance: SORAFENIB
     Dates: end: 20200105

REACTIONS (7)
  - Hypophagia [None]
  - Weight increased [None]
  - Influenza like illness [None]
  - Peritonitis bacterial [None]
  - Ascites [None]
  - Chills [None]
  - Pyrexia [None]

NARRATIVE: CASE EVENT DATE: 20200109
